FAERS Safety Report 7821185-0 (Version None)
Quarter: 2011Q4

REPORT INFORMATION
  Report Type: 
  Country: None (occurrence: None)
  Receive Date: 20111018
  Receipt Date: 20110301
  Transmission Date: 20120403
  Serious: No
  Sender: FDA-Public Use
  Company Number: US-ASTRAZENECA-2011SE11194

PATIENT
  Age: 67 Year
  Sex: Female

DRUGS (5)
  1. SYMBICORT [Suspect]
     Dosage: 160/405 MCG TWO TIMES A DAY
     Route: 055
     Dates: start: 20110101
  2. SYMBICORT [Suspect]
     Indication: ASTHMA
     Dosage: 160/405 MCG TWO TIMES A DAY
     Route: 055
     Dates: start: 20100101
  3. SYMBICORT [Suspect]
     Indication: CHRONIC OBSTRUCTIVE PULMONARY DISEASE
     Dosage: 160/405 MCG TWO TIMES A DAY
     Route: 055
     Dates: start: 20100101
  4. SYMBICORT [Suspect]
     Dosage: 160/405 MCG TWO TIMES A DAY
     Route: 055
     Dates: start: 20110101
  5. SINGULAIR [Concomitant]

REACTIONS (4)
  - DRUG DOSE OMISSION [None]
  - THERAPEUTIC RESPONSE UNEXPECTED [None]
  - INTRAOCULAR PRESSURE INCREASED [None]
  - NO ADVERSE EVENT [None]
